FAERS Safety Report 6704054-9 (Version None)
Quarter: 2010Q2

REPORT INFORMATION
  Report Type: 
  Country: None (occurrence: None)
  Receive Date: 20100430
  Receipt Date: 20100423
  Transmission Date: 20101027
  Serious: Yes (Hospitalization)
  Sender: FDA-Public Use
  Company Number: BR-BAYER-200816673LA

PATIENT
  Age: 31 Year
  Sex: Male

DRUGS (1)
  1. CIPRO XR [Suspect]
     Indication: INFECTION
     Route: 048

REACTIONS (3)
  - ABDOMINAL PAIN UPPER [None]
  - INFECTION [None]
  - PAIN [None]
